FAERS Safety Report 24862198 (Version 1)
Quarter: 2025Q1

REPORT INFORMATION
  Report Type: Spontaneous
  Country: US (occurrence: US)
  Receive Date: 20250120
  Receipt Date: 20250120
  Transmission Date: 20250409
  Serious: No
  Sender: JOHNSON AND JOHNSON
  Company Number: US-JNJFOC-20241237477

PATIENT
  Sex: Female

DRUGS (1)
  1. RYBREVANT [Suspect]
     Active Substance: AMIVANTAMAB-VMJW
     Indication: Product used for unknown indication
     Route: 065

REACTIONS (13)
  - Dry mouth [Unknown]
  - Nasal dryness [Unknown]
  - Dry throat [Unknown]
  - Peripheral swelling [Unknown]
  - Dysphonia [Unknown]
  - Flushing [Unknown]
  - Rash [Unknown]
  - Acne [Unknown]
  - Pruritus [Unknown]
  - Dry eye [Unknown]
  - Dry skin [Unknown]
  - Paronychia [Unknown]
  - Nail infection [Unknown]
